FAERS Safety Report 19226637 (Version 2)
Quarter: 2022Q2

REPORT INFORMATION
  Report Type: Report from Study
  Country: US (occurrence: US)
  Receive Date: 20210506
  Receipt Date: 20220422
  Transmission Date: 20220720
  Serious: Yes (Hospitalization, Other)
  Sender: FDA-Public Use
  Company Number: US-BOEHRINGERINGELHEIM-2021-BI-092161

PATIENT
  Age: 77 Year
  Sex: Male
  Weight: 60.5 kg

DRUGS (7)
  1. NINTEDANIB [Suspect]
     Active Substance: NINTEDANIB
     Indication: Non-small cell lung cancer
     Route: 048
     Dates: start: 20210222, end: 20210307
  2. NIVOLUMAB [Concomitant]
     Active Substance: NIVOLUMAB
     Indication: Non-small cell lung cancer
     Route: 042
     Dates: start: 20210222, end: 20210222
  3. IPILIMUMAB [Concomitant]
     Active Substance: IPILIMUMAB
     Indication: Non-small cell lung cancer
     Route: 042
     Dates: start: 20210222, end: 20210222
  4. CELEXA [Concomitant]
     Active Substance: CITALOPRAM HYDROBROMIDE
     Indication: Product used for unknown indication
     Dosage: 1/2 TAB
     Route: 048
  5. MIRALAX [Concomitant]
     Active Substance: POLYETHYLENE GLYCOL 3350
     Indication: Product used for unknown indication
     Dosage: ORAL POWDER FOR RECONSTITUTION
     Route: 048
  6. OXYCONTIN [Concomitant]
     Active Substance: OXYCODONE HYDROCHLORIDE
     Indication: Product used for unknown indication
     Dosage: TAB, EXTENDED RELEASE
     Route: 048
  7. ADVIL [Concomitant]
     Active Substance: IBUPROFEN
     Indication: Pyrexia
     Dosage: 2 TAB Q4HR, PRN
     Route: 048

REACTIONS (4)
  - Abdominal pain [Unknown]
  - Pleuritic pain [Unknown]
  - Pulmonary embolism [Unknown]
  - Constipation [Unknown]

NARRATIVE: CASE EVENT DATE: 20210316
